FAERS Safety Report 21253055 (Version 4)
Quarter: 2023Q1

REPORT INFORMATION
  Report Type: Report from Study
  Country: PA (occurrence: PA)
  Receive Date: 20220825
  Receipt Date: 20230322
  Transmission Date: 20230417
  Serious: Yes (Other)
  Sender: FDA-Public Use
  Company Number: PA-NOVARTISPH-NVSC2022PA190119

PATIENT
  Sex: Female
  Weight: 156 kg

DRUGS (3)
  1. KISQALI [Suspect]
     Active Substance: RIBOCICLIB
     Indication: Metastases to bone
     Dosage: 600 MG, TID
     Route: 048
     Dates: start: 202103
  2. KISQALI [Suspect]
     Active Substance: RIBOCICLIB
     Indication: Breast cancer metastatic
     Dosage: 600 MG, QD
     Route: 048
     Dates: start: 202103
  3. ANASTROZOLE [Suspect]
     Active Substance: ANASTROZOLE
     Indication: Product used for unknown indication
     Dosage: UNK
     Route: 065

REACTIONS (12)
  - Metastases to bone [Unknown]
  - Metastases to spine [Unknown]
  - Back pain [Recovering/Resolving]
  - Heat illness [Unknown]
  - Blood pressure increased [Unknown]
  - Haemoglobin increased [Recovering/Resolving]
  - Fluid retention [Unknown]
  - Weight increased [Unknown]
  - Eye swelling [Unknown]
  - Abdominal discomfort [Unknown]
  - Product use in unapproved indication [Unknown]
  - Off label use [Unknown]
